FAERS Safety Report 13664000 (Version 2)
Quarter: 2017Q2

REPORT INFORMATION
  Report Type: Spontaneous
  Country: IT (occurrence: IT)
  Receive Date: 20170619
  Receipt Date: 20170622
  Transmission Date: 20170830
  Serious: Yes (Other)
  Sender: FDA-Public Use
  Company Number: IT-TEVA-776920ACC

PATIENT
  Age: 50 Year
  Sex: Female

DRUGS (1)
  1. LETROZOLO TEVA - TEVA ITALIA S.R.L. [Suspect]
     Active Substance: LETROZOLE
     Indication: BREAST NEOPLASM
     Dosage: 2.5 MILLIGRAM DAILY;
     Route: 048
     Dates: start: 20170427

REACTIONS (2)
  - Pruritus [Not Recovered/Not Resolved]
  - Dermatitis [Not Recovered/Not Resolved]

NARRATIVE: CASE EVENT DATE: 20170505
